FAERS Safety Report 14162897 (Version 2)
Quarter: 2018Q1

REPORT INFORMATION
  Report Type: Report from Study
  Country: US (occurrence: US)
  Receive Date: 20171106
  Receipt Date: 20180214
  Transmission Date: 20180508
  Serious: No
  Sender: FDA-Public Use
  Company Number: US-PUMA BIOTECHNOLOGY, LTD.-2017US013970

PATIENT

DRUGS (4)
  1. NERLYNX [Suspect]
     Active Substance: NERATINIB
     Dosage: 240 MG, DAILY
     Route: 048
     Dates: start: 20171115, end: 20180125
  2. NERLYNX [Suspect]
     Active Substance: NERATINIB
     Indication: BREAST CANCER
     Dosage: 240 MG, DAILY
     Route: 048
     Dates: start: 20170930, end: 20171107
  3. NERLYNX [Suspect]
     Active Substance: NERATINIB
     Dosage: 200 MG, DAILY
     Route: 048
     Dates: start: 20171108, end: 20171114
  4. NERLYNX [Suspect]
     Active Substance: NERATINIB
     Dosage: UNK

REACTIONS (10)
  - White blood cell count decreased [Unknown]
  - Blood calcium decreased [Unknown]
  - Dehydration [Not Recovered/Not Resolved]
  - Nausea [Recovering/Resolving]
  - Blood potassium decreased [Unknown]
  - Diarrhoea [Recovering/Resolving]
  - Viral infection [Unknown]
  - Decreased appetite [Not Recovered/Not Resolved]
  - Abdominal discomfort [Not Recovered/Not Resolved]
  - Drug dose omission [Unknown]

NARRATIVE: CASE EVENT DATE: 2017
